FAERS Safety Report 7116037-8 (Version None)
Quarter: 2010Q4

REPORT INFORMATION
  Report Type: 
  Country: None (occurrence: None)
  Receive Date: 20101122
  Receipt Date: 20101111
  Transmission Date: 20110411
  Serious: Yes (Other)
  Sender: FDA-Public Use
  Company Number: PE-GILEAD-2010-0033468

PATIENT
  Age: 37 Year
  Sex: Female
  Weight: 82.5 kg

DRUGS (2)
  1. EMTRICITABINE/TENOFOVIR DISOPROXIL FUMARATE [Suspect]
     Indication: HIV INFECTION
     Dates: start: 20091202
  2. KALETRA [Suspect]
     Indication: HIV INFECTION
     Dates: start: 20091202

REACTIONS (1)
  - ABORTION SPONTANEOUS [None]
